FAERS Safety Report 13747018 (Version 1)
Quarter: 2017Q3

REPORT INFORMATION
  Report Type: Report from Study
  Country: GB (occurrence: GB)
  Receive Date: 20170712
  Receipt Date: 20170712
  Transmission Date: 20171127
  Serious: Yes (Death)
  Sender: FDA-Public Use
  Company Number: GB-JNJFOC-20170325770

PATIENT
  Sex: Female
  Weight: 131.5 kg

DRUGS (10)
  1. RAMIPRIL. [Concomitant]
     Active Substance: RAMIPRIL
     Route: 065
     Dates: start: 20100601
  2. DIHYDROCODEINE [Concomitant]
     Active Substance: DIHYDROCODEINE
     Route: 065
     Dates: start: 20110601
  3. STELARA [Suspect]
     Active Substance: USTEKINUMAB
     Indication: PSORIASIS
     Route: 058
     Dates: start: 20151110
  4. FOLIC ACID. [Concomitant]
     Active Substance: FOLIC ACID
     Route: 065
     Dates: start: 20100601
  5. BISOPROLOL [Concomitant]
     Active Substance: BISOPROLOL
     Route: 065
     Dates: start: 20100601
  6. PANTOPRAZOLE [Concomitant]
     Active Substance: PANTOPRAZOLE
     Route: 065
     Dates: start: 20110601
  7. DITHRANOL [Concomitant]
     Active Substance: ANTHRALIN
     Route: 065
     Dates: start: 20110601
  8. ALENDRONIC ACID [Concomitant]
     Active Substance: ALENDRONIC ACID
     Route: 065
     Dates: start: 20100601
  9. METFORMIN [Concomitant]
     Active Substance: METFORMIN HYDROCHLORIDE
     Route: 065
     Dates: start: 20110601
  10. QUININE SULFATE. [Concomitant]
     Active Substance: QUININE SULFATE
     Route: 065
     Dates: start: 20110601

REACTIONS (6)
  - Myocardial ischaemia [Fatal]
  - Ischaemic nephropathy [Fatal]
  - Hepatic steatosis [Fatal]
  - Cardiac failure [Fatal]
  - Acute kidney injury [Fatal]
  - Hypertensive heart disease [Fatal]
